FAERS Safety Report 4678709-4 (Version None)
Quarter: 2005Q2

REPORT INFORMATION
  Report Type: 
  Country: None (occurrence: None)
  Receive Date: 20050531
  Receipt Date: 20050517
  Transmission Date: 20051028
  Serious: Yes (Death, Hospitalization)
  Sender: FDA-Public Use
  Company Number: CLOF-10016

PATIENT
  Age: 58 Year
  Sex: Male

DRUGS (4)
  1. CLOFARABINE [Suspect]
     Indication: ACUTE MYELOID LEUKAEMIA
     Dosage: 57 MG DAILY IV
     Route: 042
     Dates: start: 20050429, end: 20050503
  2. CYTARABINE [Suspect]
     Indication: ACUTE MYELOID LEUKAEMIA
     Dosage: 3840 MG DAILY IV
     Route: 042
     Dates: start: 20050429, end: 20050503
  3. EPINEPHRINE [Concomitant]
  4. BROAD SPECTRUM ANTIBIOTICS (NOS) [Concomitant]

REACTIONS (11)
  - BRADYCARDIA [None]
  - DIALYSIS [None]
  - ERYTHEMA [None]
  - GENERAL PHYSICAL HEALTH DETERIORATION [None]
  - HYPOTENSION [None]
  - OEDEMA [None]
  - OEDEMA PERIPHERAL [None]
  - PAIN [None]
  - RENAL FAILURE [None]
  - SEPSIS [None]
  - SKIN REACTION [None]
